FAERS Safety Report 5960863-5 (Version None)
Quarter: 2008Q4

REPORT INFORMATION
  Report Type: 
  Country: None (occurrence: None)
  Receive Date: 20081118
  Receipt Date: 20081105
  Transmission Date: 20090506
  Serious: Yes (Other)
  Sender: FDA-Public Use
  Company Number: ENC200800204

PATIENT
  Age: 67 Year
  Sex: Female

DRUGS (1)
  1. ARGATROBAN [Suspect]
     Indication: ANTICOAGULANT THERAPY
     Dosage: SEE IMAGE
     Route: 042

REACTIONS (6)
  - CARDIAC TAMPONADE [None]
  - COAGULATION TIME PROLONGED [None]
  - CONTINUOUS HAEMODIAFILTRATION [None]
  - HAEMORRHAGE [None]
  - INTENTIONAL DRUG MISUSE [None]
  - OVERDOSE [None]
